FAERS Safety Report 5080846-X (Version None)
Quarter: 2006Q3

REPORT INFORMATION
  Report Type: 
  Country: None (occurrence: None)
  Receive Date: 20060810
  Receipt Date: 20060731
  Transmission Date: 20061208
  Serious: Yes (Other)
  Sender: FDA-Public Use
  Company Number: 2006089754

PATIENT
  Age: 39 Year
  Sex: Male
  Weight: 63 kg

DRUGS (5)
  1. TOLTERODINE TARTRATE [Suspect]
     Indication: HYPERTONIC BLADDER
     Dosage: 4 MG (4 MG, 1 IN 1 D), ORAL
     Route: 048
     Dates: start: 20060627, end: 20060711
  2. MEILAX (ETHYL LOFLAZEPATE) [Suspect]
     Indication: DEPRESSION
     Dosage: 2 MG (2 MG, 1 IN 1 D), ORAL
     Route: 048
     Dates: start: 20040614, end: 20060709
  3. DOGMATYL (SULPIRIDE) [Suspect]
     Indication: DEPRESSION
     Dosage: 300 MG (100 MG, 3 IN 1 D), ORAL
     Route: 048
     Dates: start: 20040614, end: 20060709
  4. EURODIN (ESTAZOLAM) [Suspect]
     Indication: DEPRESSION
     Dosage: (1), ORAL
     Route: 048
     Dates: start: 20040614, end: 20060709
  5. ZOLPIDEM TARTRATE [Suspect]
     Indication: DEPRESSION
     Dosage: 10 MG (10 MG, 1 IN 1 D), ORAL
     Route: 048
     Dates: start: 20040614, end: 20060709

REACTIONS (4)
  - FLUID RETENTION [None]
  - GENERALISED OEDEMA [None]
  - OLIGURIA [None]
  - WEIGHT INCREASED [None]
